FAERS Safety Report 20584531 (Version 1)
Quarter: 2022Q1

REPORT INFORMATION
  Report Type: Spontaneous
  Country: US (occurrence: US)
  Receive Date: 20220311
  Receipt Date: 20220311
  Transmission Date: 20220423
  Serious: Yes (Other)
  Sender: FDA-Public Use
  Company Number: US-NOVARTISPH-NVSC2022US052906

PATIENT
  Sex: Female

DRUGS (2)
  1. COSENTYX [Suspect]
     Active Substance: SECUKINUMAB
     Indication: Product used for unknown indication
     Dosage: UNK
     Route: 065
  2. COSENTYX [Suspect]
     Active Substance: SECUKINUMAB
     Dosage: UNK
     Route: 065
     Dates: start: 20220301

REACTIONS (8)
  - Immunosuppression [Unknown]
  - Nephrolithiasis [Unknown]
  - Back pain [Unknown]
  - Injection site rash [Unknown]
  - Nervous system disorder [Unknown]
  - Adverse drug reaction [Unknown]
  - Herpes zoster [Unknown]
  - Headache [Unknown]

NARRATIVE: CASE EVENT DATE: 20220225
